FAERS Safety Report 13135786 (Version 3)
Quarter: 2017Q2

REPORT INFORMATION
  Report Type: Report from Study
  Country: US (occurrence: US)
  Receive Date: 20170120
  Receipt Date: 20170410
  Transmission Date: 20170830
  Serious: Yes (Hospitalization)
  Sender: FDA-Public Use
  Company Number: US-ACTELION-A-NJ2016-146553

PATIENT
  Age: 62 Year
  Sex: Female
  Weight: 79.37 kg

DRUGS (4)
  1. WARFARIN [Concomitant]
     Active Substance: WARFARIN
  2. SILDENAFIL CITRATE. [Concomitant]
     Active Substance: SILDENAFIL CITRATE
  3. VELETRI [Suspect]
     Active Substance: EPOPROSTENOL
     Dosage: 18 NG/KG, PER MIN
     Route: 042
  4. VELETRI [Suspect]
     Active Substance: EPOPROSTENOL
     Indication: PORTOPULMONARY HYPERTENSION
     Dosage: 16 NG/KG, PER MIN
     Route: 042
     Dates: start: 20161118

REACTIONS (14)
  - Arthralgia [Unknown]
  - Abdominal pain upper [Unknown]
  - Decreased appetite [Unknown]
  - Blood potassium decreased [Recovered/Resolved]
  - Diarrhoea [Recovering/Resolving]
  - Weight decreased [Unknown]
  - Headache [Unknown]
  - Supraventricular tachycardia [Recovered/Resolved]
  - Nausea [Recovering/Resolving]
  - Malaise [Unknown]
  - Vomiting [Recovering/Resolving]
  - Pain in jaw [Unknown]
  - Catheter site pruritus [Unknown]
  - Electrolyte imbalance [Recovered/Resolved]
